FAERS Safety Report 5458155-6 (Version None)
Quarter: 2007Q3

REPORT INFORMATION
  Report Type: 
  Country: None (occurrence: None)
  Receive Date: 20070917
  Receipt Date: 20070910
  Transmission Date: 20080115
  Serious: Yes (Other)
  Sender: FDA-Public Use
  Company Number: 2007SP010794

PATIENT
  Age: 41 Year
  Sex: Male
  Weight: 71 kg

DRUGS (4)
  1. PEG-INTRON [Suspect]
     Indication: HEPATITIS C
     Dosage: 100 MCG; QW; SC
     Route: 058
     Dates: start: 20061222, end: 20070427
  2. REBETOL [Suspect]
     Indication: HEPATITIS C
     Dosage: 800 MG;QD;PO;  600 MG;QD;PO
     Route: 048
     Dates: start: 20061222, end: 20070406
  3. REBETOL [Suspect]
     Indication: HEPATITIS C
     Dosage: 800 MG;QD;PO;  600 MG;QD;PO
     Route: 048
     Dates: start: 20070407, end: 20070502
  4. URSO 250 [Concomitant]

REACTIONS (3)
  - HAEMOGLOBIN DECREASED [None]
  - MALAISE [None]
  - SCHIZOPHRENIFORM DISORDER [None]
